FAERS Safety Report 5693192-8 (Version None)
Quarter: 2008Q2

REPORT INFORMATION
  Report Type: 
  Country: None (occurrence: None)
  Receive Date: 20080403
  Receipt Date: 20080318
  Transmission Date: 20081010
  Serious: No
  Sender: FDA-Public Use
  Company Number: US-BAYER-200817772NA

PATIENT
  Age: 30 Year
  Sex: Female

DRUGS (1)
  1. MAGNEVIST SINGLE USE VIAL [Suspect]
     Indication: NUCLEAR MAGNETIC RESONANCE IMAGING
     Dosage: TOTAL DAILY DOSE: 20 ML  UNIT DOSE: 20 ML
     Route: 042
     Dates: start: 20080314, end: 20080314

REACTIONS (1)
  - RETCHING [None]
